FAERS Safety Report 8445660-3 (Version None)
Quarter: 2012Q2

REPORT INFORMATION
  Report Type: 
  Country: None (occurrence: None)
  Receive Date: 20120618
  Receipt Date: 20120608
  Transmission Date: 20120825
  Serious: Yes (Hospitalization)
  Sender: FDA-Public Use
  Company Number: DE-JNJFOC-20120518805

PATIENT
  Sex: Female
  Weight: 61 kg

DRUGS (3)
  1. REMICADE [Suspect]
     Indication: COLITIS ULCERATIVE
     Route: 042
     Dates: start: 20080428
  2. MESALAMINE [Concomitant]
     Indication: COLITIS
     Route: 048
  3. BUDENOFALK [Concomitant]
     Indication: COLITIS
     Route: 048

REACTIONS (1)
  - MENIERE'S DISEASE [None]
